FAERS Safety Report 7538418-0 (Version None)
Quarter: 2011Q2

REPORT INFORMATION
  Report Type: 
  Country: None (occurrence: None)
  Receive Date: 20110609
  Receipt Date: 20110606
  Transmission Date: 20111010
  Serious: Yes (Death, Hospitalization)
  Sender: FDA-Public Use
  Company Number: US-GILEAD-2011-0035794

PATIENT
  Sex: Male
  Weight: 94.886 kg

DRUGS (2)
  1. LETAIRIS [Suspect]
     Indication: PULMONARY SARCOIDOSIS
  2. LETAIRIS [Suspect]
     Indication: PULMONARY HYPERTENSION
     Route: 048
     Dates: start: 20090430

REACTIONS (2)
  - RESPIRATORY FAILURE [None]
  - COLON CANCER METASTATIC [None]
